FAERS Safety Report 22344117 (Version 1)
Quarter: 2023Q2

REPORT INFORMATION
  Report Type: Spontaneous
  Country: AR (occurrence: AR)
  Receive Date: 20230519
  Receipt Date: 20230519
  Transmission Date: 20230722
  Serious: Yes (Other)
  Sender: FDA-Public Use
  Company Number: AR-GLAXOSMITHKLINE-AR2023AMR023201

PATIENT

DRUGS (2)
  1. BENLYSTA [Suspect]
     Active Substance: BELIMUMAB
     Indication: Systemic lupus erythematosus
     Dosage: UNK, 120 MG - 400 MG
     Dates: start: 201610
  2. BENLYSTA [Suspect]
     Active Substance: BELIMUMAB
     Dosage: 800 MG
     Dates: start: 20161001

REACTIONS (3)
  - Cataract [Recovered/Resolved]
  - Gastrointestinal pain [Not Recovered/Not Resolved]
  - Maculopathy [Recovered/Resolved]

NARRATIVE: CASE EVENT DATE: 20230213
